FAERS Safety Report 21714407 (Version 1)
Quarter: 2022Q4

REPORT INFORMATION
  Report Type: Spontaneous
  Country: US (occurrence: None)
  Receive Date: 20221211
  Receipt Date: 20221211
  Transmission Date: 20230113
  Serious: Yes (Hospitalization)
  Sender: FDA-Public Use
  Company Number: None

PATIENT
  Sex: Male

DRUGS (2)
  1. ABIRATERONE [Suspect]
     Active Substance: ABIRATERONE
  2. PREDNISONE [Suspect]
     Active Substance: PREDNISONE

REACTIONS (1)
  - Fall [None]
